FAERS Safety Report 5632313-X (Version None)
Quarter: 2008Q1

REPORT INFORMATION
  Report Type: 
  Country: None (occurrence: None)
  Receive Date: 20080131
  Receipt Date: 20071002
  Transmission Date: 20080703
  Serious: No
  Sender: FDA-Public Use
  Company Number: 163-21880-07100217

PATIENT
  Age: 67 Year
  Sex: Female

DRUGS (1)
  1. REVLIMID [Suspect]
     Indication: MULTIPLE MYELOMA
     Dosage: 25 MG, QD 21 DAYS ON, ORAL
     Route: 048
     Dates: start: 20070926, end: 20070928

REACTIONS (4)
  - AURICULAR SWELLING [None]
  - RASH [None]
  - SWELLING FACE [None]
  - TREMOR [None]
